FAERS Safety Report 8241098-2 (Version None)
Quarter: 2012Q1

REPORT INFORMATION
  Report Type: 
  Country: None (occurrence: None)
  Receive Date: 20120328
  Receipt Date: 20120321
  Transmission Date: 20120608
  Serious: Yes (Hospitalization)
  Sender: FDA-Public Use
  Company Number: US-GLAXOSMITHKLINE-A0971344A

PATIENT
  Sex: Female

DRUGS (3)
  1. FLOLAN [Suspect]
     Indication: SYSTEMIC SCLEROSIS
     Route: 042
     Dates: start: 20110513
  2. ADCIRCA [Concomitant]
     Dosage: 40MG PER DAY
  3. BUMETANIDE [Concomitant]
     Dosage: 2MG PER DAY

REACTIONS (1)
  - CARDIAC FAILURE CONGESTIVE [None]
